FAERS Safety Report 5292638-7 (Version None)
Quarter: 2007Q2

REPORT INFORMATION
  Report Type: 
  Country: None (occurrence: None)
  Receive Date: 20070404
  Receipt Date: 20070327
  Transmission Date: 20071010
  Serious: Yes (Other)
  Sender: FDA-Public Use
  Company Number: 154489ISR

PATIENT
  Age: 46 Year
  Sex: Male

DRUGS (1)
  1. FLUOXETINE [Suspect]
     Dosage: 20 MG (20 MG, 1 IN 1 D) ORAL
     Route: 048
     Dates: start: 19990101, end: 19990101

REACTIONS (1)
  - HUNTINGTON'S CHOREA [None]
